FAERS Safety Report 17084200 (Version 1)
Quarter: 2019Q4

REPORT INFORMATION
  Report Type: Spontaneous
  Country: DE (occurrence: DE)
  Receive Date: 20191127
  Receipt Date: 20191127
  Transmission Date: 20200122
  Serious: Yes (Hospitalization, Other)
  Sender: FDA-Public Use
  Company Number: DE-NOVOPROD-697229

PATIENT
  Age: 32 Year
  Sex: Female

DRUGS (6)
  1. ESTRIFAM [Suspect]
     Active Substance: ESTRADIOL
     Indication: ASSISTED REPRODUCTIVE TECHNOLOGY
     Dosage: UNK
     Route: 065
  2. BREVACTID [Suspect]
     Active Substance: GONADOTROPHIN, CHORIONIC
     Indication: ASSISTED REPRODUCTIVE TECHNOLOGY
     Dosage: UNK
     Route: 065
  3. OVALEAP [Suspect]
     Active Substance: FOLLITROPIN
     Indication: ASSISTED REPRODUCTIVE TECHNOLOGY
     Dosage: UNK
     Route: 065
  4. DUPHASTON [Suspect]
     Active Substance: DYDROGESTERONE
     Indication: ASSISTED REPRODUCTIVE TECHNOLOGY
     Dosage: UNK
     Route: 065
  5. TRIPTOFEM [Suspect]
     Active Substance: TRIPTORELIN ACETATE
     Indication: ASSISTED REPRODUCTIVE TECHNOLOGY
     Dosage: UNK
     Route: 065
  6. ORGALUTRAN [Suspect]
     Active Substance: GANIRELIX ACETATE
     Indication: ASSISTED REPRODUCTIVE TECHNOLOGY
     Dosage: UNK
     Route: 065

REACTIONS (3)
  - Renal failure [Recovered/Resolved]
  - Ovarian hyperstimulation syndrome [Recovered/Resolved]
  - Product use in unapproved indication [Unknown]

NARRATIVE: CASE EVENT DATE: 20190824
